FAERS Safety Report 25640383 (Version 1)
Quarter: 2025Q3

REPORT INFORMATION
  Report Type: Spontaneous
  Country: US (occurrence: None)
  Receive Date: 20250801
  Receipt Date: 20250801
  Transmission Date: 20251020
  Serious: Yes (Hospitalization)
  Sender: FDA-CTU
  Company Number: None

PATIENT
  Age: 52 Year
  Sex: Female

DRUGS (3)
  1. TAVNEOS [Suspect]
     Active Substance: AVACOPAN
     Dates: start: 20250508
  2. HYDROXYZINE [Suspect]
     Active Substance: HYDROXYZINE HYDROCHLORIDE
     Dates: start: 20250508
  3. TAVNEOS [Concomitant]
     Active Substance: AVACOPAN

REACTIONS (4)
  - Alanine aminotransferase increased [None]
  - Liver injury [None]
  - Staphylococcal infection [None]
  - Chromaturia [None]

NARRATIVE: CASE EVENT DATE: 20250801
